FAERS Safety Report 5319025-7 (Version None)
Quarter: 2007Q1

REPORT INFORMATION
  Report Type: 
  Country: None (occurrence: None)
  Receive Date: 20070201
  Receipt Date: 20051206
  Transmission Date: 20070707
  Serious: Yes (Hospitalization)
  Sender: FDA-Public Use
  Company Number: US-2005-023829

PATIENT
  Age: 40 Year
  Sex: Female
  Weight: 54 kg

DRUGS (1)
  1. MIRENA [Suspect]
     Indication: CONTRACEPTION
     Dosage: 20 UG/DAY,CONT,INTRA-UTERINE
     Route: 067
     Dates: start: 20051020, end: 20051106

REACTIONS (1)
  - PELVIC INFLAMMATORY DISEASE [None]
